FAERS Safety Report 5735437-1 (Version None)
Quarter: 2008Q2

REPORT INFORMATION
  Report Type: 
  Country: None (occurrence: None)
  Receive Date: 20080512
  Receipt Date: 20080428
  Transmission Date: 20081010
  Serious: Yes (Other)
  Sender: FDA-Public Use
  Company Number: IT-ROCHE-561936

PATIENT
  Age: 47 Year
  Sex: Male

DRUGS (10)
  1. MYCOPHENOLATE MOFETIL [Suspect]
     Route: 065
     Dates: start: 19980101
  2. MYCOPHENOLATE MOFETIL [Suspect]
     Route: 065
     Dates: start: 20070101
  3. ROSIGLITAZONE [Interacting]
     Indication: PROTEINURIA
     Route: 065
     Dates: start: 20070101, end: 20070401
  4. CYCLOSPORINE [Suspect]
     Indication: IMMUNOSUPPRESSION
     Route: 065
     Dates: start: 19980101
  5. NIFEDIPINE [Concomitant]
  6. FUROSEMIDE [Concomitant]
  7. SODIUM BICARBONATE [Concomitant]
     Indication: HYPERURICAEMIA
  8. ALLOPURINOL [Concomitant]
     Indication: HYPERURICAEMIA
  9. CALCITRIOL [Concomitant]
  10. RAMIPRIL [Concomitant]

REACTIONS (2)
  - ANAEMIA [None]
  - DRUG INTERACTION [None]
